FAERS Safety Report 9614605 (Version 2)
Quarter: 2014Q2

REPORT INFORMATION
  Report Type: Spontaneous
  Country: BR (occurrence: BR)
  Receive Date: 20131011
  Receipt Date: 20140401
  Transmission Date: 20141212
  Serious: Yes (Other)
  Sender: FDA-Public Use
  Company Number: BR-AMGEN-BRASP2013070992

PATIENT
  Age: 59 Year
  Sex: Female
  Weight: 84 kg

DRUGS (9)
  1. ENBREL [Suspect]
     Indication: PSORIATIC ARTHROPATHY
     Dosage: 50 MG, ONCE WEEKLY
     Route: 058
     Dates: start: 20130520, end: 201310
  2. LOSARTAN POTASSIUM [Concomitant]
     Dosage: STRENGTH 25, TWICE DAILY
  3. DIGOXIN [Concomitant]
     Dosage: STRENGTH 0.25 MG, ONCE DAILY
  4. ALDACTONE                          /00006201/ [Concomitant]
     Dosage: TWICE DAILY
  5. BROMAZEPAM [Concomitant]
     Dosage: STRENGTH 6 MG
  6. LASIX                              /00032601/ [Concomitant]
     Dosage: EVERY 2 DAYS
  7. DIVELOL [Concomitant]
     Dosage: STRENGTH 6.25, TWICE DAILY
  8. CARVEDILOL [Concomitant]
     Dosage: UNK
  9. PROFLAM [Concomitant]
     Dosage: UNK

REACTIONS (9)
  - Formication [Not Recovered/Not Resolved]
  - Pain in extremity [Not Recovered/Not Resolved]
  - Cough [Unknown]
  - Suffocation feeling [Unknown]
  - Bronchospasm [Unknown]
  - Pneumonia [Unknown]
  - Bronchitis [Unknown]
  - Influenza [Unknown]
  - Catarrh [Unknown]
